FAERS Safety Report 5801011-1 (Version None)
Quarter: 2008Q3

REPORT INFORMATION
  Report Type: 
  Country: None (occurrence: None)
  Receive Date: 20080704
  Receipt Date: 20080701
  Transmission Date: 20090109
  Serious: Yes (Other)
  Sender: FDA-Public Use
  Company Number: GB-RANBAXY-2008RR-16145

PATIENT

DRUGS (7)
  1. IBUPROFEN TABLETS [Suspect]
     Dosage: 400 MG, TID
     Dates: start: 20080622, end: 20080623
  2. CYCLIZINE [Suspect]
     Dosage: 50 MG, TID
     Dates: start: 20080621, end: 20080622
  3. ONDANSETRON [Suspect]
     Dosage: 4 MG, TID
     Dates: start: 20080621, end: 20080623
  4. CIPROFLOXACIN [Concomitant]
  5. FENTANYL [Concomitant]
  6. HEPARIN [Concomitant]
  7. ACETAMINOPHEN [Concomitant]

REACTIONS (5)
  - HYPOTENSION [None]
  - MUSCULAR WEAKNESS [None]
  - RASH ERYTHEMATOUS [None]
  - SENSATION OF HEAVINESS [None]
  - TACHYCARDIA [None]
